FAERS Safety Report 9934250 (Version 1)
Quarter: 2014Q1

REPORT INFORMATION
  Report Type: Report from Study
  Country: US (occurrence: US)
  Receive Date: 20140228
  Receipt Date: 20140228
  Transmission Date: 20141002
  Serious: No
  Sender: FDA-Public Use
  Company Number: US-B.I. PHARMACEUTICALS,INC./RIDGEFIELD-2014-BI-07815BP

PATIENT
  Sex: Male

DRUGS (3)
  1. SPIRIVA [Suspect]
     Indication: CHRONIC OBSTRUCTIVE PULMONARY DISEASE
     Dosage: DAILY DOSE QD
     Route: 065
     Dates: start: 20110106
  2. ALBUTEROL [Concomitant]
     Route: 065
  3. ICS [Concomitant]
     Route: 065

REACTIONS (1)
  - Chronic obstructive pulmonary disease [Unknown]
